FAERS Safety Report 4841044-5 (Version None)
Quarter: 2005Q4

REPORT INFORMATION
  Report Type: 
  Country: None (occurrence: None)
  Receive Date: 20051130
  Receipt Date: 20050902
  Transmission Date: 20060501
  Serious: No
  Sender: FDA-Public Use
  Company Number: US-BRISTOL-MYERS SQUIBB COMPANY-13099411

PATIENT
  Age: 35 Year
  Sex: Male

DRUGS (1)
  1. ABILIFY [Suspect]
     Indication: BIPOLAR II DISORDER
     Dosage: ORIGINALLY PRESCRIBED ARIPIPRAZOLE 10 MG FOR 6 MONTHS

REACTIONS (2)
  - BRUXISM [None]
  - MUSCLE RIGIDITY [None]
